FAERS Safety Report 6057773-4 (Version None)
Quarter: 2009Q1

REPORT INFORMATION
  Report Type: 
  Country: None (occurrence: None)
  Receive Date: 20090129
  Receipt Date: 20090121
  Transmission Date: 20090719
  Serious: Yes (Other)
  Sender: FDA-Public Use
  Company Number: PHHY2008NL28896

PATIENT
  Sex: Male

DRUGS (8)
  1. NEORAL [Suspect]
     Indication: HEART TRANSPLANT
     Dosage: 75 MG, BID
     Dates: start: 19960101
  2. NEORAL [Suspect]
     Dosage: 50 MG, BID
     Route: 048
     Dates: start: 20070829
  3. PRAVASTATIN [Concomitant]
     Indication: BLOOD CHOLESTEROL ABNORMAL
     Dosage: 10 MG, QD
     Route: 048
     Dates: start: 19990712
  4. SOTALOL [Concomitant]
     Indication: RESPIRATORY DISORDER
     Dosage: 80 MG, QD
     Dates: start: 20030127
  5. PREDNISOLONE [Concomitant]
     Dosage: 5 MG, BID
     Route: 048
     Dates: start: 20051209
  6. COZAAR [Concomitant]
     Indication: HYPERTENSION
     Dosage: 50 MG, QD
     Dates: start: 20030502
  7. ACETYLSALICYLIC ACID SRT [Concomitant]
     Indication: COAGULATION TEST ABNORMAL
     Dosage: 80 MG, QD
     Dates: start: 19990712
  8. CALCIUM WITH VITAMIN D [Concomitant]
     Dosage: 500 MG, QD
     Dates: start: 20070427

REACTIONS (2)
  - CATARACT [None]
  - DRY EYE [None]
